FAERS Safety Report 7360706-1 (Version None)
Quarter: 2011Q1

REPORT INFORMATION
  Report Type: 
  Country: None (occurrence: None)
  Receive Date: 20110318
  Receipt Date: 20110311
  Transmission Date: 20110831
  Serious: Yes (Hospitalization)
  Sender: FDA-Public Use
  Company Number: IT-BRISTOL-MYERS SQUIBB COMPANY-15604531

PATIENT
  Age: 81 Year
  Sex: Female

DRUGS (4)
  1. SERETIDE [Concomitant]
     Dosage: 1DF=50/500 INHALANT POWDER SERETIDE DISKUS
     Route: 055
  2. LASIX [Suspect]
     Indication: HYPERTENSIVE HEART DISEASE
     Dosage: 1DF=4 UNIT/DAY LASIX 25MG
     Route: 048
     Dates: start: 20101004, end: 20110208
  3. COUMADIN [Suspect]
     Indication: ANTICOAGULANT THERAPY
     Dosage: 1DF=1 UNIT/D
     Route: 048
     Dates: start: 20110104, end: 20110208
  4. SPIRIVA [Concomitant]
     Dosage: CAPS

REACTIONS (2)
  - ACUTE PULMONARY OEDEMA [None]
  - NORMOCHROMIC NORMOCYTIC ANAEMIA [None]
